FAERS Safety Report 18708628 (Version 4)
Quarter: 2021Q2

REPORT INFORMATION
  Report Type: Spontaneous
  Country: US (occurrence: US)
  Receive Date: 20210106
  Receipt Date: 20210402
  Transmission Date: 20210717
  Serious: No
  Sender: FDA-Public Use
  Company Number: NVSC2021US000793

PATIENT
  Sex: Female

DRUGS (9)
  1. POTASSIUM [Concomitant]
     Active Substance: POTASSIUM
     Indication: PRODUCT USED FOR UNKNOWN INDICATION
     Dosage: 10 MG
     Route: 065
  2. LOSARTAN. [Concomitant]
     Active Substance: LOSARTAN
     Indication: PRODUCT USED FOR UNKNOWN INDICATION
     Dosage: UNK
     Route: 065
  3. FUROSEMIDE. [Concomitant]
     Active Substance: FUROSEMIDE
     Indication: PRODUCT USED FOR UNKNOWN INDICATION
     Dosage: UNK
     Route: 065
  4. TRAVOPROST. [Suspect]
     Active Substance: TRAVOPROST
     Indication: PRODUCT USED FOR UNKNOWN INDICATION
     Dosage: 2.5 ML, QD
     Route: 065
  5. TRAVOPROST. [Suspect]
     Active Substance: TRAVOPROST
     Route: 065
  6. SIMBRINZA [Suspect]
     Active Substance: BRIMONIDINE TARTRATE\BRINZOLAMIDE
     Indication: PRODUCT USED FOR UNKNOWN INDICATION
     Dosage: UNK UNK, TID
     Route: 065
  7. TRAVOPROST. [Suspect]
     Active Substance: TRAVOPROST
     Dosage: UNK
     Route: 065
  8. TRAVOPROST. [Suspect]
     Active Substance: TRAVOPROST
     Dosage: 1 DROP EACH EYE
     Route: 065
     Dates: start: 20210101
  9. VITAMIN D [Concomitant]
     Active Substance: VITAMIN D NOS
     Indication: PRODUCT USED FOR UNKNOWN INDICATION
     Dosage: UNK
     Route: 065

REACTIONS (6)
  - Product physical issue [Unknown]
  - Madarosis [Unknown]
  - Blepharitis [Unknown]
  - Trichiasis [Unknown]
  - Eye pain [Unknown]
  - Feeling abnormal [Unknown]
